FAERS Safety Report 6584825-2 (Version None)
Quarter: 2010Q1

REPORT INFORMATION
  Report Type: 
  Country: None (occurrence: None)
  Receive Date: 20100204
  Receipt Date: 20100122
  Transmission Date: 20100710
  Serious: Yes (Hospitalization, Other)
  Sender: FDA-Public Use
  Company Number: 230865J10USA

PATIENT
  Age: 37 Year
  Sex: Female

DRUGS (6)
  1. REBIF [Suspect]
     Indication: MULTIPLE SCLEROSIS
     Dosage: 44 MCG, 3 IN 1 WEEKS, SUBCUTANEOUS
     Route: 058
     Dates: start: 20090831, end: 20091101
  2. DURAGESIC PATCH (FENTANYL /00174601/) [Concomitant]
  3. FENTANYL [Concomitant]
  4. NORCO [Concomitant]
  5. AMITRIPTYLNE (AMITRIPTYLINE /0002201/) [Concomitant]
  6. ANTIDEPRESSANT (ANTIDEPRESSANT) [Concomitant]

REACTIONS (4)
  - BACK PAIN [None]
  - CHEST PAIN [None]
  - CHRONIC OBSTRUCTIVE PULMONARY DISEASE [None]
  - PNEUMONIA [None]
